FAERS Safety Report 19215927 (Version 4)
Quarter: 2022Q1

REPORT INFORMATION
  Report Type: Report from Study
  Country: FR (occurrence: FR)
  Receive Date: 20210505
  Receipt Date: 20220113
  Transmission Date: 20220423
  Serious: Yes (Hospitalization, Other)
  Sender: FDA-Public Use
  Company Number: FR-ABBVIE-21K-056-3887723-00

PATIENT
  Age: 48 Year
  Sex: Male

DRUGS (10)
  1. HUMIRA [Suspect]
     Active Substance: ADALIMUMAB
     Indication: Colitis ulcerative
     Route: 058
     Dates: start: 20151001, end: 20151231
  2. HUMIRA [Suspect]
     Active Substance: ADALIMUMAB
     Route: 058
     Dates: start: 20160115, end: 201904
  3. AZATHIOPRINE [Suspect]
     Active Substance: AZATHIOPRINE
     Indication: Colitis ulcerative
     Route: 048
     Dates: start: 199802, end: 201904
  4. NERISONE [Concomitant]
     Active Substance: DIFLUCORTOLONE VALERATE
     Indication: Skin lesion
     Route: 003
     Dates: start: 20160219, end: 20160304
  5. NERISONE [Concomitant]
     Active Substance: DIFLUCORTOLONE VALERATE
     Route: 003
     Dates: start: 20160923, end: 20161002
  6. NERISONE [Concomitant]
     Active Substance: DIFLUCORTOLONE VALERATE
     Route: 003
     Dates: start: 201610, end: 20161005
  7. NERISONE [Concomitant]
     Active Substance: DIFLUCORTOLONE VALERATE
     Dosage: AS REQUIRED
     Route: 003
     Dates: start: 20170329
  8. DIPROSONE [Concomitant]
     Active Substance: BETAMETHASONE DIPROPIONATE
     Indication: Skin lesion
     Dosage: AS REQUIRED
     Route: 003
     Dates: start: 20161006
  9. CHOLECALCIFEROL [Concomitant]
     Active Substance: CHOLECALCIFEROL
     Indication: Vitamin supplementation
     Dosage: OTHER THREE MONTHS
     Route: 048
     Dates: start: 20160926, end: 201904
  10. PENTASA [Concomitant]
     Active Substance: MESALAMINE
     Indication: Colitis ulcerative
     Route: 048
     Dates: start: 20170912, end: 201906

REACTIONS (1)
  - Goitre [Recovered/Resolved]

NARRATIVE: CASE EVENT DATE: 20180801
